FAERS Safety Report 12327973 (Version 2)
Quarter: 2016Q2

REPORT INFORMATION
  Report Type: Spontaneous
  Country: DE (occurrence: DE)
  Receive Date: 20160503
  Receipt Date: 20160614
  Transmission Date: 20160815
  Serious: Yes (Disabling, Other)
  Sender: FDA-Public Use
  Company Number: DE-ROCHE-1748634

PATIENT
  Age: 63 Year
  Sex: Female
  Weight: 71 kg

DRUGS (10)
  1. PERJETA [Suspect]
     Active Substance: PERTUZUMAB
     Dosage: IN TOTAL 8 ADMINISTRATIONS
     Route: 042
     Dates: end: 20160209
  2. TAXOTERE [Suspect]
     Active Substance: DOCETAXEL
     Dosage: IN TOTAL 4 ADMINISTRATIONS
     Route: 065
     Dates: start: 20151027, end: 20151117
  3. CYCLOPHOSPHAMID [Concomitant]
     Active Substance: CYCLOPHOSPHAMIDE
     Indication: BREAST CANCER
     Dosage: MAMMA CARCINOMA
     Route: 042
     Dates: start: 20151208, end: 20160209
  4. PERJETA [Suspect]
     Active Substance: PERTUZUMAB
     Indication: BREAST CANCER
     Dosage: LOADING DOSE
     Route: 042
     Dates: start: 20150915, end: 20150915
  5. HERCEPTIN [Suspect]
     Active Substance: TRASTUZUMAB
     Indication: BREAST CANCER
     Dosage: LOADING DOSE
     Route: 065
     Dates: start: 20150915, end: 20150915
  6. KEVATRIL [Concomitant]
     Active Substance: GRANISETRON HYDROCHLORIDE
     Route: 065
     Dates: start: 20150915, end: 20160209
  7. DEXAMETHASON [Concomitant]
     Active Substance: DEXAMETHASONE
     Dosage: IN TOTAL 12 ADMINISTRATIONS
     Route: 042
     Dates: start: 20150915, end: 20160209
  8. TAXOTERE [Suspect]
     Active Substance: DOCETAXEL
     Indication: BREAST CANCER
     Route: 065
     Dates: start: 20150915
  9. EPIRUBICIN [Suspect]
     Active Substance: EPIRUBICIN
     Indication: BREAST CANCER
     Dosage: 75%, IN TOTAL 4 ADMINISTRATIONS
     Route: 065
     Dates: start: 20151208, end: 20160209
  10. HERCEPTIN [Suspect]
     Active Substance: TRASTUZUMAB
     Dosage: IN TOTAL 10 ADMINISTRATIONS
     Route: 065
     Dates: end: 20160330

REACTIONS (3)
  - Ejection fraction decreased [Not Recovered/Not Resolved]
  - Cardiac failure [Not Recovered/Not Resolved]
  - Heart valve incompetence [Unknown]

NARRATIVE: CASE EVENT DATE: 20160414
